FAERS Safety Report 6922860-2 (Version None)
Quarter: 2010Q3

REPORT INFORMATION
  Report Type: 
  Country: None (occurrence: None)
  Receive Date: 20100813
  Receipt Date: 20100803
  Transmission Date: 20110219
  Serious: Yes (Hospitalization)
  Sender: FDA-Public Use
  Company Number: CA-PFIZER INC-2010084726

PATIENT
  Age: 46 Year
  Sex: Female
  Weight: 64 kg

DRUGS (7)
  1. SUNITINIB MALATE [Suspect]
     Indication: PHAEOCHROMOCYTOMA
     Dosage: 37.5 MG, ONE TIME PER DAY, 4 WEEKS ON AND 2 WEEKS OFF
     Dates: start: 20100610, end: 20100705
  2. PERCOCET [Concomitant]
     Indication: PAIN
     Dosage: UNK
     Route: 048
     Dates: start: 20100301
  3. FRAGMIN [Concomitant]
     Indication: COAGULOPATHY
     Dosage: UNK
     Route: 058
     Dates: start: 20100101
  4. NOVO-PRAZIN [Concomitant]
     Indication: HYPERTENSION
     Dosage: UNK
     Route: 048
     Dates: start: 20091001
  5. LISINOPRIL [Concomitant]
     Indication: HYPERTENSION
     Dosage: UNK
     Route: 048
     Dates: start: 20100506
  6. STEMETIL ^AVENTIS PHARMA^ [Concomitant]
     Indication: NAUSEA
     Dosage: UNK
     Route: 048
     Dates: start: 20100625, end: 20100707
  7. STEMETIL ^AVENTIS PHARMA^ [Concomitant]
     Indication: VOMITING

REACTIONS (4)
  - DEHYDRATION [None]
  - HYPERHIDROSIS [None]
  - NAUSEA [None]
  - VOMITING [None]
